FAERS Safety Report 9705363 (Version 2)
Quarter: 2014Q4

REPORT INFORMATION
  Report Type: Report from Study
  Country: US (occurrence: US)
  Receive Date: 20131122
  Receipt Date: 20141105
  Transmission Date: 20150529
  Serious: Yes (Hospitalization, Other)
  Sender: FDA-Public Use
  Company Number: PHEH2013US024447

PATIENT
  Age: 65 Year
  Sex: Male

DRUGS (1)
  1. GLEEVEC [Suspect]
     Active Substance: IMATINIB MESYLATE
     Indication: GASTROINTESTINAL STROMAL TUMOUR
     Dosage: 400 MG, QD
     Route: 048
     Dates: start: 20120105

REACTIONS (7)
  - Second primary malignancy [Unknown]
  - Feeding disorder [Unknown]
  - Abdominal distension [Unknown]
  - Lung neoplasm malignant [Unknown]
  - Gastrointestinal stromal tumour [Not Recovered/Not Resolved]
  - Abdominal pain [Unknown]
  - Neoplasm recurrence [Not Recovered/Not Resolved]

NARRATIVE: CASE EVENT DATE: 20141009
